FAERS Safety Report 20845875 (Version 1)
Quarter: 2022Q2

REPORT INFORMATION
  Report Type: Spontaneous
  Country: US (occurrence: US)
  Receive Date: 20220518
  Receipt Date: 20220518
  Transmission Date: 20220720
  Serious: Yes (Other)
  Sender: FDA-Public Use
  Company Number: US-PFIZER INC-202200707415

PATIENT
  Age: 71 Year
  Sex: Female

DRUGS (9)
  1. PAXLOVID [Suspect]
     Active Substance: NIRMATRELVIR\RITONAVIR
     Indication: COVID-19 treatment
     Dosage: UNK
     Dates: start: 20220501, end: 20220504
  2. ZYDUS [Concomitant]
     Dosage: UNK
     Dates: start: 202203, end: 202205
  3. Amneal [Concomitant]
     Dosage: UNK
     Dates: start: 202203, end: 202205
  4. Alfasigma [Concomitant]
     Dosage: UNK
     Dates: start: 202203, end: 202205
  5. Carlson [Concomitant]
     Dosage: UNK
     Dates: start: 202203, end: 202205
  6. NATURE MADE [Concomitant]
     Dates: start: 202203, end: 202205
  7. Natures Bounty [Concomitant]
     Dosage: UNK
     Dates: start: 202203, end: 202205
  8. Natures Bounty [Concomitant]
     Dosage: UNK
     Dates: start: 202203, end: 202205
  9. Natures Bounty [Concomitant]
     Dosage: UNK
     Dates: start: 202203, end: 202205

REACTIONS (4)
  - Blood pressure systolic increased [Unknown]
  - Fatigue [Unknown]
  - Diarrhoea [Unknown]
  - Dysgeusia [Unknown]

NARRATIVE: CASE EVENT DATE: 20220504
